FAERS Safety Report 5094984-9 (Version None)
Quarter: 2006Q3

REPORT INFORMATION
  Report Type: 
  Country: None (occurrence: None)
  Receive Date: 20060901
  Receipt Date: 20060110
  Transmission Date: 20061208
  Serious: Yes (Hospitalization)
  Sender: FDA-Public Use
  Company Number: JP-BAYER-200610017BYL

PATIENT
  Age: 67 Year
  Sex: Male
  Weight: 67 kg

DRUGS (19)
  1. BAY43-9006 [Suspect]
     Indication: NON-SMALL CELL LUNG CANCER
     Dosage: TOTAL DAILY DOSE: 800 MG
     Route: 048
     Dates: start: 20051129
  2. BAY43-9006 [Suspect]
     Dosage: TOTAL DAILY DOSE: 800 MG
     Route: 048
     Dates: start: 20051223, end: 20060107
  3. TAXOL [Suspect]
     Indication: NON-SMALL CELL LUNG CANCER
     Route: 042
     Dates: start: 20051128, end: 20051128
  4. TAXOL [Suspect]
     Route: 042
     Dates: start: 20051222, end: 20051222
  5. PARAPLATIN [Suspect]
     Indication: NON-SMALL CELL LUNG CANCER
     Route: 042
     Dates: start: 20051128, end: 20051128
  6. PARAPLATIN [Suspect]
     Route: 042
     Dates: start: 20051222, end: 20051222
  7. DECADRON [Concomitant]
     Route: 042
     Dates: start: 20051128, end: 20051128
  8. DECADRON [Concomitant]
     Route: 042
     Dates: start: 20051222, end: 20051222
  9. RESTAMIN [Concomitant]
     Dosage: TOTAL DAILY DOSE: 50 MG  UNIT DOSE: 50 MG
     Route: 048
     Dates: start: 20051222, end: 20051222
  10. RESTAMIN [Concomitant]
     Dosage: TOTAL DAILY DOSE: 50 MG  UNIT DOSE: 50 MG
     Route: 048
     Dates: start: 20051128, end: 20051128
  11. ZANTAC [Concomitant]
     Route: 042
     Dates: start: 20051222, end: 20051222
  12. ZANTAC [Concomitant]
     Route: 042
     Dates: start: 20051128, end: 20051128
  13. KYTRIL [Concomitant]
     Indication: PROPHYLAXIS OF NAUSEA AND VOMITING
     Route: 042
     Dates: start: 20051128, end: 20051128
  14. KYTRIL [Concomitant]
     Route: 042
     Dates: start: 20051222, end: 20051222
  15. LOXONIN [Concomitant]
     Indication: PAIN
     Dosage: TOTAL DAILY DOSE: 180 MG  UNIT DOSE: 60 MG
     Route: 048
     Dates: start: 20051201
  16. MUCOSTA [Concomitant]
     Indication: PROPHYLAXIS AGAINST GASTROINTESTINAL ULCER
     Dosage: TOTAL DAILY DOSE: 100 MG
     Route: 048
     Dates: start: 20051201
  17. POSTERISAN [Concomitant]
     Indication: ANAL DISCOMFORT
     Route: 062
     Dates: start: 20051216, end: 20051220
  18. PURSENNID [Concomitant]
     Indication: CONSTIPATION
     Dosage: TOTAL DAILY DOSE: 48 MG  UNIT DOSE: 24 MG
     Route: 048
     Dates: start: 20051217
  19. ORONINE [Concomitant]
     Indication: RASH
     Route: 062
     Dates: start: 20051209, end: 20051209

REACTIONS (2)
  - DIZZINESS [None]
  - ELECTROCARDIOGRAM QT CORRECTED INTERVAL PROLONGED [None]
